FAERS Safety Report 7875009-6 (Version None)
Quarter: 2011Q4

REPORT INFORMATION
  Report Type: 
  Country: None (occurrence: None)
  Receive Date: 20111014
  Receipt Date: 20110314
  Transmission Date: 20120403
  Serious: Yes (Hospitalization)
  Sender: FDA-Public Use
  Company Number: 1000019254

PATIENT
  Age: 44 Year
  Sex: Male
  Weight: 73 kg

DRUGS (6)
  1. LEXAPRO [Suspect]
     Indication: DEPRESSION
     Dosage: ORAL ; ORAL
     Route: 048
     Dates: start: 20110101, end: 20110101
  2. AMBIEN CR [Suspect]
     Indication: INSOMNIA
     Dosage: 12.5 MG (12.5 MG,1 IN 1 D),ORAL ; ORAL
     Route: 048
     Dates: start: 20101201
  3. AMBIEN CR [Suspect]
     Indication: INSOMNIA
     Dosage: 12.5 MG (12.5 MG,1 IN 1 D),ORAL ; ORAL
     Route: 048
     Dates: start: 20110101, end: 20110101
  4. LUNESTA [Suspect]
     Indication: INSOMNIA
     Dosage: 2 MG (2 MG,1 IN 1 D),ORAL ; ORAL
     Route: 048
     Dates: start: 20101001, end: 20101201
  5. LUNESTA [Suspect]
     Indication: INSOMNIA
     Dosage: 2 MG (2 MG,1 IN 1 D),ORAL ; ORAL
     Route: 048
     Dates: start: 20110101, end: 20110101
  6. XANAX [Suspect]
     Indication: DEPRESSION
     Dosage: ORAL ; ORAL
     Route: 048
     Dates: start: 20110101, end: 20110101

REACTIONS (2)
  - SUICIDE ATTEMPT [None]
  - MULTIPLE DRUG OVERDOSE [None]
